FAERS Safety Report 6056542-9 (Version None)
Quarter: 2009Q1

REPORT INFORMATION
  Report Type: 
  Country: None (occurrence: None)
  Receive Date: 20090126
  Receipt Date: 20090119
  Transmission Date: 20090719
  Serious: Yes (Hospitalization)
  Sender: FDA-Public Use
  Company Number: CHPA2009US00790

PATIENT
  Age: 91 Year
  Sex: Female
  Weight: 74.8 kg

DRUGS (2)
  1. BENEFIBER W/ WHEAT DEXTRIN               (WHEAT DEXTRIN) [Suspect]
     Dosage: ORAL
     Route: 048
  2. ANTIHYPERTENSIVES (NO INGREDIENTS/SUBSTANCES) [Concomitant]

REACTIONS (3)
  - DEHYDRATION [None]
  - MALAISE [None]
  - VOMITING [None]
